FAERS Safety Report 25543063 (Version 1)
Quarter: 2025Q3

REPORT INFORMATION
  Report Type: Spontaneous
  Country: TN (occurrence: TN)
  Receive Date: 20250711
  Receipt Date: 20250711
  Transmission Date: 20251020
  Serious: Yes (Other)
  Sender: MYLAN
  Company Number: TN-MYLANLABS-2025M1057639

PATIENT
  Age: 82 Year
  Sex: Male

DRUGS (4)
  1. METHOTREXATE [Suspect]
     Active Substance: METHOTREXATE
     Indication: Psoriasis
     Dosage: 50 MILLIGRAM, QW, RECEIVED FIVE TABLETS EVERY TWO DAYS
  2. METHOTREXATE [Suspect]
     Active Substance: METHOTREXATE
     Dosage: 50 MILLIGRAM, QW, RECEIVED FIVE TABLETS EVERY TWO DAYS
     Route: 048
  3. METHOTREXATE [Suspect]
     Active Substance: METHOTREXATE
     Dosage: 50 MILLIGRAM, QW, RECEIVED FIVE TABLETS EVERY TWO DAYS
     Route: 048
  4. METHOTREXATE [Suspect]
     Active Substance: METHOTREXATE
     Dosage: 50 MILLIGRAM, QW, RECEIVED FIVE TABLETS EVERY TWO DAYS

REACTIONS (4)
  - Mucocutaneous toxicity [Recovering/Resolving]
  - Mucocutaneous ulceration [Recovering/Resolving]
  - Intentional product misuse [Recovering/Resolving]
  - Inappropriate schedule of product administration [Recovering/Resolving]
